FAERS Safety Report 11229374 (Version 15)
Quarter: 2018Q4

REPORT INFORMATION
  Report Type: Report from Study
  Country: BR (occurrence: BR)
  Receive Date: 20150630
  Receipt Date: 20181109
  Transmission Date: 20190204
  Serious: Yes (Death, Other)
  Sender: FDA-Public Use
  Company Number: PHHY2015BR077903

PATIENT
  Age: 76 Year
  Sex: Female
  Weight: 62 kg

DRUGS (15)
  1. SANDOSTATIN LAR DEPOT [Suspect]
     Active Substance: OCTREOTIDE ACETATE
     Dosage: 1 DF, (1 AMPOULE) EVERY 40 DAYS
     Route: 030
  2. SANDOSTATIN LAR DEPOT [Suspect]
     Active Substance: OCTREOTIDE ACETATE
     Dosage: 30 MG (ONCE A MONTH)
     Route: 030
  3. CAPTOPRIL. [Concomitant]
     Active Substance: CAPTOPRIL
     Indication: HYPERTENSION
     Dosage: 1 DF, 25 MG
     Route: 048
  4. SANDOSTATIN LAR DEPOT [Suspect]
     Active Substance: OCTREOTIDE ACETATE
     Indication: NEUROENDOCRINE TUMOUR
     Dosage: 30 MG, QMO
     Route: 030
     Dates: start: 201401
  5. SANDOSTATIN LAR DEPOT [Suspect]
     Active Substance: OCTREOTIDE ACETATE
     Dosage: UNK, APPROXIMATELY EVERY 45 DAYS
     Route: 030
  6. SANDOSTATIN LAR DEPOT [Suspect]
     Active Substance: OCTREOTIDE ACETATE
     Dosage: UNK, EVERY 48 DAYS
     Route: 030
     Dates: start: 201601
  7. ESCITALOPRAM [Concomitant]
     Active Substance: ESCITALOPRAM OXALATE
     Indication: DEPRESSION
     Dosage: 1 DF, UNK
     Route: 048
  8. SANDOSTATIN LAR DEPOT [Suspect]
     Active Substance: OCTREOTIDE ACETATE
     Dosage: 30 MG, EVERY 30/40 DAYS
     Route: 030
  9. PROLOPA [Concomitant]
     Active Substance: BENSERAZIDE\LEVODOPA
     Indication: CORTICOBASAL DEGENERATION
     Dosage: 3 DF, QD (200MG/500MG) (4-5 YRS AGO)
     Route: 048
  10. SANDOSTATIN LAR DEPOT [Suspect]
     Active Substance: OCTREOTIDE ACETATE
     Dosage: UNK, EVERY 45 DAYS
     Route: 030
     Dates: start: 20160602
  11. SANDOSTATIN LAR DEPOT [Suspect]
     Active Substance: OCTREOTIDE ACETATE
     Dosage: UNK, EVERY 45 DAYS
     Route: 030
     Dates: start: 20161125
  12. SANDOSTATIN LAR DEPOT [Suspect]
     Active Substance: OCTREOTIDE ACETATE
     Dosage: UNK, ALMOST 2 MONTHS
     Route: 030
     Dates: start: 201603
  13. HYDROCHLOROTHIAZIDE. [Concomitant]
     Active Substance: HYDROCHLOROTHIAZIDE
     Indication: HYPERTENSION
     Dosage: 1 DF, 25 MG
     Route: 048
  14. SANDOSTATIN LAR DEPOT [Suspect]
     Active Substance: OCTREOTIDE ACETATE
     Indication: PULMONARY MASS
     Dosage: UNK, AFTER 20 TO 25 DAYS
     Route: 030
  15. FRESUBIN [Concomitant]
     Active Substance: AMINO ACIDS\DEXTROSE\ELECTROLYTES NOS\SOYBEAN OIL\VITAMINS
     Indication: PRODUCT USED FOR UNKNOWN INDICATION
     Route: 065

REACTIONS (15)
  - Carcinoid tumour [Fatal]
  - Ovarian cyst [Recovering/Resolving]
  - Corticobasal degeneration [Not Recovered/Not Resolved]
  - Dysphagia [Not Recovered/Not Resolved]
  - Speech disorder [Not Recovered/Not Resolved]
  - Asthenia [Not Recovered/Not Resolved]
  - Product use issue [Unknown]
  - Respiratory failure [Fatal]
  - Choking [Recovered/Resolved]
  - Eating disorder [Not Recovered/Not Resolved]
  - Inappropriate schedule of product administration [Unknown]
  - Uterine neoplasm [Recovering/Resolving]
  - Parkinson^s disease [Not Recovered/Not Resolved]
  - Tongue movement disturbance [Unknown]
  - Needle issue [Unknown]

NARRATIVE: CASE EVENT DATE: 20181019
